FAERS Safety Report 17221602 (Version 1)
Quarter: 2020Q1

REPORT INFORMATION
  Report Type: Report from Study
  Country: JP (occurrence: JP)
  Receive Date: 20200101
  Receipt Date: 20200101
  Transmission Date: 20200409
  Serious: Yes (Death, Life-Threatening)
  Sender: FDA-Public Use
  Company Number: JP-AMGEN-JPNCT2018187128

PATIENT
  Age: 82 Year
  Sex: Female

DRUGS (43)
  1. VIDAZA [Suspect]
     Active Substance: AZACITIDINE
     Dosage: 65 MILLIGRAM
     Route: 065
     Dates: start: 20180827, end: 20180831
  2. VIDAZA [Suspect]
     Active Substance: AZACITIDINE
     Dosage: 65 MILLIGRAM
     Route: 065
     Dates: start: 20190107, end: 20190111
  3. ISOSORBIDE DINITRATE. [Concomitant]
     Active Substance: ISOSORBIDE DINITRATE
     Dosage: UNK
     Dates: start: 20190430
  4. VIDAZA [Suspect]
     Active Substance: AZACITIDINE
     Dosage: 55 MILLIGRAM
     Route: 065
     Dates: start: 20190204, end: 20190208
  5. AMLODIPINE [Concomitant]
     Active Substance: AMLODIPINE BESYLATE
     Indication: HYPERTENSION
     Dosage: 5 MG
     Route: 048
     Dates: end: 20180610
  6. PA [Concomitant]
     Active Substance: ACETAMINOPHEN\CAFFEINE\PROMETHAZINE\SALICYLAMIDE
     Dosage: 6 DOSAGE FORM
     Route: 048
     Dates: start: 20180219, end: 20180223
  7. KYTRIL [Concomitant]
     Active Substance: GRANISETRON HYDROCHLORIDE
     Indication: MYELODYSPLASTIC SYNDROME
     Dosage: 2 MILLIGRAM
     Route: 048
     Dates: start: 20180402, end: 20180406
  8. URSO [Concomitant]
     Active Substance: URSODIOL
     Indication: HEPATIC FUNCTION ABNORMAL
     Dosage: 200 MILLIGRAM
     Route: 048
     Dates: start: 20180508, end: 20190414
  9. DARBEPOETIN ALFA [Suspect]
     Active Substance: DARBEPOETIN ALFA
     Dosage: 120 MICROGRAM, Q3WK
     Route: 058
     Dates: start: 20180501, end: 20180522
  10. VIDAZA [Suspect]
     Active Substance: AZACITIDINE
     Dosage: 60 MILLIGRAM
     Route: 065
     Dates: start: 20180507, end: 20180511
  11. VIDAZA [Suspect]
     Active Substance: AZACITIDINE
     Dosage: 65 MILLIGRAM
     Route: 065
     Dates: start: 20180611, end: 20180615
  12. VIDAZA [Suspect]
     Active Substance: AZACITIDINE
     Dosage: 60 MILLIGRAM
     Route: 065
     Dates: start: 20190408, end: 20190412
  13. INDOMETACIN [Concomitant]
     Active Substance: INDOMETHACIN
     Indication: OSTEOARTHRITIS
     Dosage: ADEQUATE DOSE
     Route: 061
     Dates: start: 20170828, end: 20171030
  14. CALONAL [Concomitant]
     Active Substance: ACETAMINOPHEN
     Indication: SPINAL OSTEOARTHRITIS
     Dosage: 800 MILLIGRAM
     Route: 048
     Dates: start: 20171113, end: 20181001
  15. PA [Concomitant]
     Active Substance: ACETAMINOPHEN\CAFFEINE\PROMETHAZINE\SALICYLAMIDE
     Dosage: 6 DOSAGE FORM
     Route: 048
     Dates: start: 20180122, end: 20180131
  16. ALLEGRA [Concomitant]
     Active Substance: FEXOFENADINE HYDROCHLORIDE
     Indication: HYPERTONIC BLADDER
     Dosage: 120 MILLIGRAM
     Route: 048
     Dates: start: 20180306, end: 20180507
  17. MOSAPRIDE [Concomitant]
     Active Substance: MOSAPRIDE
     Indication: CHRONIC GASTRITIS
     Dosage: 10 MILLIGRAM
     Route: 048
     Dates: start: 20180423
  18. DARBEPOETIN ALFA [Suspect]
     Active Substance: DARBEPOETIN ALFA
     Dosage: 120 MICROGRAM, QWK
     Route: 058
     Dates: start: 20171010, end: 20171023
  19. DARBEPOETIN ALFA [Suspect]
     Active Substance: DARBEPOETIN ALFA
     Dosage: 120 MICROGRAM, QWK
     Route: 058
     Dates: start: 20171106, end: 20171127
  20. DARBEPOETIN ALFA [Suspect]
     Active Substance: DARBEPOETIN ALFA
     Dosage: 240 MICROGRAM, Q2WK
     Route: 058
     Dates: start: 20180703, end: 20190509
  21. VIDAZA [Suspect]
     Active Substance: AZACITIDINE
     Dosage: 65 MILLIGRAM
     Route: 065
     Dates: start: 20181001, end: 20181005
  22. VESICARE [Concomitant]
     Active Substance: SOLIFENACIN SUCCINATE
     Indication: HYPERTONIC BLADDER
     Dosage: 5 MILLIGRAM
     Route: 048
     Dates: start: 20180305, end: 20190429
  23. BACTRAMIN [Concomitant]
     Active Substance: SULFAMETHOXAZOLE\TRIMETHOPRIM
     Dosage: 2 DOSAGE FORM
     Route: 048
     Dates: start: 20180403, end: 20181028
  24. VIDAZA [Suspect]
     Active Substance: AZACITIDINE
     Indication: MYELODYSPLASTIC SYNDROME
     Dosage: 60 MG
     Route: 065
     Dates: start: 20180402, end: 20180406
  25. VIDAZA [Suspect]
     Active Substance: AZACITIDINE
     Dosage: 65 MILLIGRAM
     Route: 065
     Dates: start: 20181210, end: 20181214
  26. LASIX [Concomitant]
     Active Substance: FUROSEMIDE
     Dosage: 20 MG
     Route: 048
     Dates: start: 20190430
  27. VIDAZA [Suspect]
     Active Substance: AZACITIDINE
     Dosage: 60 MILLIGRAM
     Route: 065
     Dates: start: 20190513, end: 20190515
  28. LOXOPROFEN SODIUM [Concomitant]
     Active Substance: LOXOPROFEN SODIUM
     Indication: OSTEOARTHRITIS
     Dosage: 100 MILLIGRAM
  29. TIZANIDINE. [Concomitant]
     Active Substance: TIZANIDINE
     Indication: SPINAL OSTEOARTHRITIS
     Dosage: 1 MILLIGRAM
     Route: 048
     Dates: start: 20171030, end: 20171126
  30. OLANZAPINE. [Concomitant]
     Active Substance: OLANZAPINE
     Indication: GASTROINTESTINAL DISORDER
     Dosage: 2.5 MILLIGRAM
     Route: 048
     Dates: start: 20180615
  31. DARBEPOETIN ALFA [Suspect]
     Active Substance: DARBEPOETIN ALFA
     Indication: PRODUCT USED FOR UNKNOWN INDICATION
     Dosage: 240 MICROGRAM, QWK
     Route: 058
     Dates: start: 20170731, end: 20171002
  32. DARBEPOETIN ALFA [Suspect]
     Active Substance: DARBEPOETIN ALFA
     Dosage: 120 MICROGRAM, Q2WK
     Route: 058
     Dates: start: 20180605, end: 20180619
  33. NEXIUM I.V. [Concomitant]
     Active Substance: ESOMEPRAZOLE SODIUM
     Indication: CHRONIC GASTRITIS
     Dosage: 20 MILLIGRAM
     Route: 048
  34. NEXIUM I.V. [Concomitant]
     Active Substance: ESOMEPRAZOLE SODIUM
     Indication: GASTROOESOPHAGEAL REFLUX DISEASE
  35. DARBEPOETIN ALFA [Suspect]
     Active Substance: DARBEPOETIN ALFA
     Dosage: 120 MICROGRAM, Q2WK
     Route: 058
     Dates: start: 20171211, end: 20171225
  36. DARBEPOETIN ALFA [Suspect]
     Active Substance: DARBEPOETIN ALFA
     Dosage: 120 MICROGRAM
     Route: 058
     Dates: start: 20180104, end: 20180104
  37. DARBEPOETIN ALFA [Suspect]
     Active Substance: DARBEPOETIN ALFA
     Dosage: 120 MICROGRAM, Q2WK
     Route: 058
     Dates: start: 20180122, end: 20180416
  38. VIDAZA [Suspect]
     Active Substance: AZACITIDINE
     Dosage: 65 MILLIGRAM
     Route: 065
     Dates: start: 20181105, end: 20181109
  39. VIDAZA [Suspect]
     Active Substance: AZACITIDINE
     Dosage: 60 MILLIGRAM
     Route: 065
     Dates: start: 20190311, end: 20190315
  40. BETAHISTINE MESILATE [Concomitant]
     Active Substance: BETAHISTINE MESILATE
     Indication: DIZZINESS
     Dosage: 12 MILLIGRAM
     Route: 048
     Dates: start: 20171010
  41. TRINOSIN [Concomitant]
     Active Substance: ADENOSINE TRIPHOSPHATE DISODIUM
     Indication: DIZZINESS
     Dosage: 2 GRAM
     Route: 048
     Dates: start: 20171010, end: 20180122
  42. MOSAPRIDE [Concomitant]
     Active Substance: MOSAPRIDE
     Indication: GASTROOESOPHAGEAL REFLUX DISEASE
  43. BENIDIPINE HYDROCHLORIDE [Concomitant]
     Active Substance: BENIDIPINE HYDROCHLORIDE
     Indication: HYPERTENSION
     Dosage: 2 MILLIGRAM
     Route: 048
     Dates: start: 20180611, end: 20180731

REACTIONS (8)
  - Alveolar proteinosis [Not Recovered/Not Resolved]
  - Upper respiratory tract inflammation [Recovered/Resolved]
  - Stress cardiomyopathy [Recovering/Resolving]
  - Cardiac failure [Recovering/Resolving]
  - Upper respiratory tract inflammation [Recovered/Resolved]
  - Myelodysplastic syndrome [Fatal]
  - Allergic transfusion reaction [Recovered/Resolved]
  - Transfusion-related circulatory overload [Recovering/Resolving]

NARRATIVE: CASE EVENT DATE: 20180122
